FAERS Safety Report 14684156 (Version 1)
Quarter: 2018Q1

REPORT INFORMATION
  Report Type: Spontaneous
  Country: GB (occurrence: GB)
  Receive Date: 20180327
  Receipt Date: 20180327
  Transmission Date: 20180509
  Serious: Yes (Other)
  Sender: FDA-Public Use
  Company Number: GB-TORRENT-00016320

PATIENT
  Age: 24 Year
  Sex: Male

DRUGS (1)
  1. OLANZAPINE. [Suspect]
     Active Substance: OLANZAPINE
     Indication: ANXIETY

REACTIONS (34)
  - Joint swelling [Unknown]
  - Respiratory rate increased [Unknown]
  - Hypotension [Unknown]
  - Musculoskeletal stiffness [Unknown]
  - Dyspnoea [Unknown]
  - Urine output increased [Unknown]
  - Lip swelling [Unknown]
  - Swollen tongue [Unknown]
  - Oedema peripheral [Unknown]
  - Embolism venous [Unknown]
  - Feeling abnormal [Unknown]
  - Confusional state [Unknown]
  - Constipation [Unknown]
  - Syncope [Unknown]
  - Slow response to stimuli [Unknown]
  - Dry mouth [Unknown]
  - Thirst [Unknown]
  - Hyperhidrosis [Unknown]
  - Tension [Unknown]
  - Drug reaction with eosinophilia and systemic symptoms [Unknown]
  - Palpitations [Unknown]
  - Dizziness [Unknown]
  - Hunger [Unknown]
  - Frustration tolerance decreased [Unknown]
  - Chapped lips [Unknown]
  - Heart rate irregular [Unknown]
  - Restlessness [Unknown]
  - Irritability [Unknown]
  - Somnolence [Unknown]
  - Diabetes mellitus [Unknown]
  - Anger [Unknown]
  - Abnormal weight gain [Unknown]
  - Pyrexia [Unknown]
  - Chest pain [Unknown]
